FAERS Safety Report 4277345-1 (Version None)
Quarter: 2004Q1

REPORT INFORMATION
  Report Type: 
  Country: None (occurrence: None)
  Receive Date: 20040112
  Receipt Date: 20031223
  Transmission Date: 20041129
  Serious: Yes (Other)
  Sender: FDA-Public Use
  Company Number: A0491155A

PATIENT
  Sex: Male

DRUGS (1)
  1. ACLOVATE [Suspect]
     Dosage: TOPICAL
     Route: 061
     Dates: start: 19950101

REACTIONS (1)
  - GLAUCOMA [None]
